FAERS Safety Report 9535336 (Version 2)
Quarter: 2013Q3

REPORT INFORMATION
  Report Type: Spontaneous
  Country: US (occurrence: US)
  Receive Date: 20130918
  Receipt Date: 20130918
  Transmission Date: 20140515
  Serious: Yes (Hospitalization, Other)
  Sender: FDA-Public Use
  Company Number: US-009507513-1111USA02474

PATIENT
  Sex: Female
  Weight: 63.5 kg

DRUGS (17)
  1. FOSAMAX [Suspect]
     Dosage: 70 MG, QW
     Route: 048
     Dates: start: 20060710
  2. FOSAMAX [Suspect]
     Dosage: 40 MG, UNK
     Route: 048
  3. FOSAMAX PLUS D [Suspect]
     Dosage: 70/ 2800
     Route: 048
     Dates: start: 20060425, end: 20080402
  4. FOSAMAX [Suspect]
     Indication: OSTEOPOROSIS
     Dosage: 70 MG, UNK
     Route: 048
  5. ACETAMINOPHEN (+) HYDROCODONE BITARTRATE [Concomitant]
     Dosage: 75/650
  6. CYANOCOBALAMIN [Concomitant]
     Dosage: 1000 ?G, QM
  7. WARFARIN [Concomitant]
     Dosage: 3-4
  8. DILTIAZEM CD [Concomitant]
     Indication: HYPERTENSION
     Dosage: 300 MG, UNK
     Dates: start: 1993
  9. HEMOCYTE-F [Concomitant]
  10. MK-0152 [Concomitant]
     Dosage: 50 MG, QOD
  11. K-DUR [Concomitant]
     Dosage: 10 MEQ, UNK
     Route: 048
  12. NEURONTIN [Concomitant]
     Dosage: 300 MG, TID
  13. COUMADIN [Concomitant]
     Indication: ARTERIOSCLEROSIS
     Dosage: 3 MG, QD
     Route: 048
     Dates: start: 1993
  14. MEVACOR [Concomitant]
     Indication: HYPERCHOLESTEROLAEMIA
     Dates: start: 1993
  15. MK-9379 [Concomitant]
     Indication: HYPERTENSION
     Dosage: 25 MG, UNK
     Dates: start: 1993
  16. DILTIAZEM HYDROCHLORIDE [Concomitant]
     Indication: HYPERTENSION
     Dates: start: 1993
  17. HYDROCODONE [Concomitant]
     Indication: PAIN
     Dates: start: 1993

REACTIONS (37)
  - Bladder disorder [Unknown]
  - Hemiparesis [Unknown]
  - Pneumonia [Unknown]
  - Osteonecrosis of jaw [Recovered/Resolved]
  - Tooth disorder [Unknown]
  - Tooth disorder [Unknown]
  - Dental pulp disorder [Unknown]
  - Dental caries [Unknown]
  - Foreign body [Unknown]
  - Conjunctivitis [Unknown]
  - Gait disturbance [Unknown]
  - Osteoarthritis [Unknown]
  - Hyponatraemia [Unknown]
  - Vulvovaginal mycotic infection [Unknown]
  - Fall [Unknown]
  - Patella fracture [Unknown]
  - Weight decreased [Unknown]
  - Deep vein thrombosis [Unknown]
  - Rib fracture [Unknown]
  - Nodule [Unknown]
  - Musculoskeletal disorder [Unknown]
  - Pernicious anaemia [Unknown]
  - Cystitis [Unknown]
  - Bundle branch block right [Unknown]
  - Supraventricular extrasystoles [Unknown]
  - Spinal compression fracture [Unknown]
  - Radiculopathy [Unknown]
  - Confusional state [Unknown]
  - Cellulitis [Unknown]
  - Skin lesion [Unknown]
  - Hyperosmolar state [Unknown]
  - Pollakiuria [Unknown]
  - Gastritis [Not Recovered/Not Resolved]
  - Oedema peripheral [Unknown]
  - Gastrooesophageal reflux disease [Unknown]
  - Gastritis [Unknown]
  - Oedema peripheral [Unknown]
